FAERS Safety Report 16372278 (Version 1)
Quarter: 2019Q2

REPORT INFORMATION
  Report Type: Spontaneous
  Country: US (occurrence: US)
  Receive Date: 20190424
  Receipt Date: 20190424
  Transmission Date: 20190711
  Serious: Yes (Other)
  Sender: FDA-Public Use
  Company Number: None

PATIENT
  Age: 76 Year
  Sex: Male

DRUGS (19)
  1. PREDNISONE. [Concomitant]
     Active Substance: PREDNISONE
  2. METOPROLOL. [Concomitant]
     Active Substance: METOPROLOL
  3. GUAIFENESIN. [Concomitant]
     Active Substance: GUAIFENESIN
  4. CITALOPRAM [Concomitant]
     Active Substance: CITALOPRAM HYDROBROMIDE
  5. ALBUTEROL NEB SOLN [Concomitant]
  6. WARFARIN [Concomitant]
     Active Substance: WARFARIN
  7. DIGOXIN. [Concomitant]
     Active Substance: DIGOXIN
  8. ADVAIR DISKUS [Concomitant]
     Active Substance: FLUTICASONE PROPIONATE\SALMETEROL XINAFOATE
  9. SILDENAFIL. [Concomitant]
     Active Substance: SILDENAFIL
  10. KC1 [Concomitant]
  11. ALBUTEROL HFA [Concomitant]
     Active Substance: ALBUTEROL SULFATE
  12. GABAPENTIN. [Concomitant]
     Active Substance: GABAPENTIN
  13. METOLAZONE. [Concomitant]
     Active Substance: METOLAZONE
  14. OXYGEN. [Concomitant]
     Active Substance: OXYGEN
  15. OPSUMIT [Suspect]
     Active Substance: MACITENTAN
     Indication: PULMONARY ARTERIAL HYPERTENSION
     Route: 048
     Dates: start: 201803
  16. FAMOTIDINE. [Concomitant]
     Active Substance: FAMOTIDINE
  17. DOCUSATE SODIUM. [Concomitant]
     Active Substance: DOCUSATE SODIUM
  18. SPIRIVA RESPIMAT [Concomitant]
     Active Substance: TIOTROPIUM BROMIDE
  19. ATORVASTATIN [Concomitant]
     Active Substance: ATORVASTATIN

REACTIONS (2)
  - Chronic obstructive pulmonary disease [None]
  - Hypokalaemia [None]

NARRATIVE: CASE EVENT DATE: 20190323
